FAERS Safety Report 16202501 (Version 1)
Quarter: 2019Q2

REPORT INFORMATION
  Report Type: Spontaneous
  Country: US (occurrence: US)
  Receive Date: 20190416
  Receipt Date: 20190416
  Transmission Date: 20190711
  Serious: Yes (Other)
  Sender: FDA-Public Use
  Company Number: US-SUNOVION-2019SUN001485

PATIENT
  Sex: Male

DRUGS (1)
  1. LATUDA [Suspect]
     Active Substance: LURASIDONE HYDROCHLORIDE
     Dosage: 20 MG
     Route: 048

REACTIONS (9)
  - Weight increased [Unknown]
  - Affective disorder [Unknown]
  - Weight loss poor [Unknown]
  - Mean cell haemoglobin increased [Unknown]
  - Monocyte count increased [Unknown]
  - Dizziness [Unknown]
  - Mean platelet volume increased [Unknown]
  - Lipase decreased [Recovering/Resolving]
  - Hepatic enzyme increased [Unknown]
